FAERS Safety Report 6896715-6 (Version None)
Quarter: 2010Q3

REPORT INFORMATION
  Report Type: 
  Country: None (occurrence: None)
  Receive Date: 20100802
  Receipt Date: 20070125
  Transmission Date: 20110219
  Serious: No
  Sender: FDA-Public Use
  Company Number: US-PFIZER INC-2007007967

PATIENT
  Sex: Male
  Weight: 62.6 kg

DRUGS (5)
  1. LYRICA [Suspect]
     Indication: PAIN
     Dates: start: 20070118
  2. MORPHINE [Concomitant]
     Dates: start: 20040101
  3. ATENOLOL [Concomitant]
     Indication: HYPERTENSION
  4. NITRO-BID [Concomitant]
     Indication: CARDIAC DISORDER
     Dates: start: 20000101
  5. VICODIN [Concomitant]
     Indication: HEADACHE

REACTIONS (3)
  - FATIGUE [None]
  - MALAISE [None]
  - SOMNOLENCE [None]
